FAERS Safety Report 13383808 (Version 3)
Quarter: 2017Q2

REPORT INFORMATION
  Report Type: Report from Study
  Country: GB (occurrence: GB)
  Receive Date: 20170329
  Receipt Date: 20170518
  Transmission Date: 20170830
  Serious: Yes (Hospitalization)
  Sender: FDA-Public Use
  Company Number: GB-TEVA-752660ACC

PATIENT
  Age: 53 Year
  Sex: Female
  Weight: 63.5 kg

DRUGS (13)
  1. CISPLATIN. [Suspect]
     Active Substance: CISPLATIN
     Indication: ANAL SQUAMOUS CELL CARCINOMA
     Dosage: FIRST 21 DAY CYCLE OF CISPALTIN 80 MG/M2 (130 MG) ON DAY 1
     Route: 042
     Dates: start: 20170111
  2. TINZAPARIN [Concomitant]
     Active Substance: TINZAPARIN
  3. LYRICA [Concomitant]
     Active Substance: PREGABALIN
     Route: 065
  4. ADCAL D3 [Concomitant]
     Active Substance: CALCIUM CARBONATE\CHOLECALCIFEROL
     Route: 065
  5. PEPTAC [Concomitant]
     Active Substance: RANITIDINE HYDROCHLORIDE
     Route: 065
  6. OMEPRAZOLE. [Concomitant]
     Active Substance: OMEPRAZOLE
     Route: 065
  7. GEMCITABINE [Suspect]
     Active Substance: GEMCITABINE\GEMCITABINE HYDROCHLORIDE
     Indication: ANAL SQUAMOUS CELL CARCINOMA
     Dosage: FIRST 21 DAY CYCLE 600 MG/M2 (741 MG) ON DAYS 1 AND 8
     Route: 042
     Dates: start: 20170111
  8. GLYCERYL TRINITRATE [Concomitant]
     Active Substance: NITROGLYCERIN
     Route: 065
  9. NAPROXEN. [Concomitant]
     Active Substance: NAPROXEN
     Route: 065
  10. PARACETAMOL [Concomitant]
     Active Substance: ACETAMINOPHEN
     Route: 065
  11. LAXIDO ORANGE [Concomitant]
     Route: 065
  12. CLONAZEPAM. [Concomitant]
     Active Substance: CLONAZEPAM
     Route: 065
  13. ASPIRIN. [Concomitant]
     Active Substance: ASPIRIN
     Route: 065

REACTIONS (3)
  - Confusional state [Recovered/Resolved]
  - Dysaesthesia [Recovered/Resolved]
  - Non-cardiac chest pain [Recovered/Resolved]

NARRATIVE: CASE EVENT DATE: 20170302
